FAERS Safety Report 15534445 (Version 5)
Quarter: 2022Q4

REPORT INFORMATION
  Report Type: Report from Study
  Country: TW (occurrence: TW)
  Receive Date: 20181022
  Receipt Date: 20221222
  Transmission Date: 20230112
  Serious: Yes (Hospitalization, Other)
  Sender: FDA-Public Use
  Company Number: TW-BRISTOL-MYERS SQUIBB COMPANY-BMS-2018-098369

PATIENT
  Age: 74 Year
  Sex: Male

DRUGS (9)
  1. ABATACEPT [Suspect]
     Active Substance: ABATACEPT
     Indication: Rheumatoid arthritis
     Dosage: 250 MILLIGRAM, QMO
     Route: 042
     Dates: start: 20140421, end: 20191209
  2. ABATACEPT [Suspect]
     Active Substance: ABATACEPT
     Dosage: UNK
     Dates: start: 20181001
  3. LEVOCETIRIZINE [Concomitant]
     Active Substance: LEVOCETIRIZINE
     Indication: Rash
     Dosage: 5 MG, QN
     Route: 048
  4. CLONAZEPAM [Concomitant]
     Active Substance: CLONAZEPAM
     Indication: Hypoaesthesia
     Dosage: 0.5 MG, BID
     Route: 048
  5. FAMOTIDINE [Concomitant]
     Active Substance: FAMOTIDINE
     Indication: Gastric ulcer
     Dosage: 20 MG, BID
     Route: 048
  6. MELOXIN [MECLOFENOXATE HYDROCHLORIDE] [Concomitant]
     Indication: Rheumatoid arthritis
     Dosage: 7.5 MILLIGRAM, QD
     Route: 048
  7. FLUNARIZINE [Concomitant]
     Active Substance: FLUNARIZINE
     Indication: Dizziness
     Dosage: 5 MG, BID
     Route: 048
  8. BETAHISTINE [Concomitant]
     Active Substance: BETAHISTINE
     Indication: Dizziness
     Dosage: 24 MG, BID
     Route: 048
  9. MORCASIN [Concomitant]
     Indication: Product used for unknown indication
     Dosage: 80MG/400MG BID

REACTIONS (4)
  - Prostate cancer [Not Recovered/Not Resolved]
  - Pseudomonas infection [Recovered/Resolved]
  - Prescribed underdose [Unknown]
  - Herpes simplex [Not Recovered/Not Resolved]

NARRATIVE: CASE EVENT DATE: 20180717
